FAERS Safety Report 23077597 (Version 19)
Quarter: 2024Q3

REPORT INFORMATION
  Report Type: Spontaneous
  Country: US (occurrence: US)
  Receive Date: 20231018
  Receipt Date: 20240731
  Transmission Date: 20241017
  Serious: Yes (Other)
  Sender: UNITED THERAPEUTICS
  Company Number: US-UNITED THERAPEUTICS-UNT-2023-026878

PATIENT
  Sex: Male
  Weight: 76.19 kg

DRUGS (38)
  1. ORENITRAM [Interacting]
     Active Substance: TREPROSTINIL
     Indication: Pulmonary arterial hypertension
     Dosage: 0.125 MG, TID
     Dates: start: 202309, end: 202309
  2. ORENITRAM [Interacting]
     Active Substance: TREPROSTINIL
     Dosage: 0.25 MG, TID
     Dates: start: 202309, end: 202309
  3. ORENITRAM [Interacting]
     Active Substance: TREPROSTINIL
     Dosage: 0.375 MG, TID
     Dates: start: 202309, end: 2023
  4. ORENITRAM [Interacting]
     Active Substance: TREPROSTINIL
     Dosage: 0.625 MG, TID
     Dates: start: 20231009, end: 202310
  5. ORENITRAM [Interacting]
     Active Substance: TREPROSTINIL
     Dosage: 0.75 MG, TID
     Dates: start: 202310, end: 2023
  6. ORENITRAM [Interacting]
     Active Substance: TREPROSTINIL
     Dosage: 1 MG, TID
     Dates: start: 2023, end: 202312
  7. ORENITRAM [Interacting]
     Active Substance: TREPROSTINIL
     Dosage: 1.25 MG, TID
     Dates: start: 20231213
  8. ORENITRAM [Interacting]
     Active Substance: TREPROSTINIL
     Dosage: 1.125 MG, TID
     Dates: end: 20240312
  9. ORENITRAM [Interacting]
     Active Substance: TREPROSTINIL
     Dosage: 1.5 MG, Q8H
  10. ORENITRAM [Interacting]
     Active Substance: TREPROSTINIL
     Dosage: 1.375 MG, TID
     Dates: start: 20240312, end: 2024
  11. ORENITRAM [Interacting]
     Active Substance: TREPROSTINIL
     Dosage: 1.75 MG, Q8H
     Dates: start: 2024, end: 2024
  12. ORENITRAM [Interacting]
     Active Substance: TREPROSTINIL
     Dosage: 1.875 MG, Q8H
     Dates: start: 2024, end: 2024
  13. ORENITRAM [Interacting]
     Active Substance: TREPROSTINIL
     Dosage: 2 MG, TID
     Dates: start: 2024, end: 2024
  14. ORENITRAM [Interacting]
     Active Substance: TREPROSTINIL
     Dosage: 2.25 MG, TID
     Dates: start: 2024, end: 20240709
  15. ORENITRAM [Interacting]
     Active Substance: TREPROSTINIL
     Dosage: 2.375 MG, Q8H
     Dates: start: 20240709
  16. ORENITRAM [Interacting]
     Active Substance: TREPROSTINIL
     Dosage: UNK
  17. ORENITRAM [Interacting]
     Active Substance: TREPROSTINIL
     Indication: Pulmonary arterial hypertension
     Dosage: UNK
  18. ORENITRAM [Interacting]
     Active Substance: TREPROSTINIL
     Indication: Pulmonary arterial hypertension
     Dosage: UNK
  19. ORENITRAM [Interacting]
     Active Substance: TREPROSTINIL
     Indication: Pulmonary arterial hypertension
     Dosage: UNK
  20. VRAYLAR [Interacting]
     Active Substance: CARIPRAZINE
     Indication: Bipolar disorder
     Dosage: UNK
  21. UPTRAVI [Suspect]
     Active Substance: SELEXIPAG
     Indication: Product used for unknown indication
  22. WELLBUTRIN XL [Concomitant]
     Active Substance: BUPROPION HYDROCHLORIDE
     Indication: Product used for unknown indication
     Dosage: UNK
  23. BIOTIN [Concomitant]
     Active Substance: BIOTIN
     Indication: Product used for unknown indication
     Dosage: UNK
  24. AMBRISENTAN [Concomitant]
     Active Substance: AMBRISENTAN
     Indication: Product used for unknown indication
     Dosage: UNK
  25. KLONOPIN [Concomitant]
     Active Substance: CLONAZEPAM
     Indication: Product used for unknown indication
     Dosage: UNK
  26. TRIUMEQ [Concomitant]
     Active Substance: ABACAVIR SULFATE\DOLUTEGRAVIR SODIUM\LAMIVUDINE
     Indication: Product used for unknown indication
     Dosage: UNK
  27. ALBUTEROL SULFATE [Concomitant]
     Active Substance: ALBUTEROL SULFATE
     Indication: Product used for unknown indication
     Dosage: UNK
  28. ADDERALL [Concomitant]
     Active Substance: AMPHETAMINE ASPARTATE\AMPHETAMINE SULFATE\DEXTROAMPHETAMINE SACCHARATE\DEXTROAMPHETAMINE SULFATE
     Indication: Product used for unknown indication
     Dosage: UNK
  29. ABILIFY [Concomitant]
     Active Substance: ARIPIPRAZOLE
     Indication: Product used for unknown indication
     Dosage: UNK
  30. ASPIRIN [Concomitant]
     Active Substance: ASPIRIN
     Indication: Product used for unknown indication
     Dosage: UNK
  31. NITROSTAT [Concomitant]
     Active Substance: NITROGLYCERIN
     Indication: Product used for unknown indication
     Dosage: UNK
  32. OPSUMIT [Concomitant]
     Active Substance: MACITENTAN
     Indication: Product used for unknown indication
     Dosage: UNK
  33. AZELASTINE HYDROCHLORIDE\FLUTICASONE PROPIONATE [Concomitant]
     Active Substance: AZELASTINE HYDROCHLORIDE\FLUTICASONE PROPIONATE
     Indication: Product used for unknown indication
     Dosage: UNK
  34. CLOBETASOL PROPIONATE [Concomitant]
     Active Substance: CLOBETASOL PROPIONATE
     Indication: Product used for unknown indication
     Dosage: UNK
  35. MINERALS\VITAMINS [Concomitant]
     Active Substance: MINERALS\VITAMINS
     Indication: Product used for unknown indication
  36. LUNESTA [Concomitant]
     Active Substance: ESZOPICLONE
     Indication: Product used for unknown indication
  37. ROSUVASTATIN CALCIUM [Concomitant]
     Active Substance: ROSUVASTATIN CALCIUM
     Indication: Product used for unknown indication
  38. VITAMINS [Concomitant]
     Active Substance: VITAMINS
     Indication: Product used for unknown indication
     Dosage: UNK

REACTIONS (37)
  - Bipolar disorder [Recovering/Resolving]
  - Hallucination, visual [Unknown]
  - Anxiety [Unknown]
  - Insomnia [Recovering/Resolving]
  - Feeling cold [Recovered/Resolved]
  - Hot flush [Recovered/Resolved]
  - Nausea [Unknown]
  - Restlessness [Recovered/Resolved]
  - Chest pain [Unknown]
  - Arthropod bite [Unknown]
  - Abdominal discomfort [Recovering/Resolving]
  - Migraine [Unknown]
  - Infection [Unknown]
  - Abdominal pain upper [Recovering/Resolving]
  - Seasonal allergy [Unknown]
  - Rash [Unknown]
  - Nasal congestion [Unknown]
  - Fatigue [Not Recovered/Not Resolved]
  - Diarrhoea [Not Recovered/Not Resolved]
  - Dizziness [Unknown]
  - Extra dose administered [Unknown]
  - Poor quality sleep [Unknown]
  - Malaise [Not Recovered/Not Resolved]
  - Decreased activity [Not Recovered/Not Resolved]
  - Nervousness [Not Recovered/Not Resolved]
  - Palpitations [Unknown]
  - Abnormal dreams [Unknown]
  - Drug interaction [Unknown]
  - Drug intolerance [Recovered/Resolved]
  - Stress [Unknown]
  - Dehydration [Unknown]
  - Feeling abnormal [Not Recovered/Not Resolved]
  - Emotional disorder [Unknown]
  - Tearfulness [Unknown]
  - Neurotransmitter level altered [Unknown]
  - Bowel movement irregularity [Not Recovered/Not Resolved]
  - Treatment noncompliance [Unknown]

NARRATIVE: CASE EVENT DATE: 20230101
